FAERS Safety Report 8789348 (Version 1)
Quarter: 2012Q4

REPORT INFORMATION
  Report Type: Spontaneous
  Country: JP (occurrence: None)
  Receive Date: 20120905
  Receipt Date: 20120905
  Transmission Date: 20130627
  Serious: Yes (Hospitalization)
  Sender: FDA-Public Use
  Company Number: DSJ-2012-15261

PATIENT
  Age: 45 Year

DRUGS (11)
  1. OLMETEC [Suspect]
     Dosage: 20 mg (20 mg, 1 in 1 d), per oral
     Route: 048
     Dates: start: 20120412, end: 20120731
  2. CALBLOCK [Suspect]
     Dosage: 8 mg, 2 in 1 d) per oral
     Route: 048
     Dates: start: 20120412
  3. CALBLOCK [Suspect]
     Dosage: 8 mg (8 mg, 1 in 1 d), per oral
  4. CELECOX [Suspect]
     Dosage: 200 mg (100 mg, 2 in 1 d), per oral
     Dates: start: 20091212
  5. CERTOLIZUMAB PEGOL [Suspect]
     Dosage: 200 mg, 2 in 1wk, subcutaneous
     Route: 058
     Dates: start: 20090703, end: 20101014
  6. CERTOLIZUMAB PEGOL [Suspect]
     Dosage: 400 mg, 1 in 1 m) subcutaneous
     Route: 058
     Dates: start: 20101027, end: 20120905
  7. RHEUMATREX (METHOTREXATE) [Concomitant]
  8. FOLIAMIN (FOLIC ACID) (FOLIC ACID) [Concomitant]
  9. SELBEX (TEPRENONE) (TEPRENONE) [Concomitant]
  10. LOXONIN (LOXOPROFEN SODIUM) (LOXOPROFEN SODIUM) [Concomitant]
  11. MOHRUS (KETOPROFEN) (KETOPROFEN) [Concomitant]

REACTIONS (7)
  - Sudden hearing loss [None]
  - Deafness unilateral [None]
  - Nystagmus [None]
  - Hypoaesthesia [None]
  - Vomiting [None]
  - Tinnitus [None]
  - Vertigo [None]
